FAERS Safety Report 24191537 (Version 2)
Quarter: 2024Q3

REPORT INFORMATION
  Report Type: Spontaneous
  Country: US (occurrence: US)
  Receive Date: 20240808
  Receipt Date: 20240911
  Transmission Date: 20241017
  Serious: No
  Sender: BLUEPRINT MEDICINES
  Company Number: US-Blueprint Medicines Corporation-4420

PATIENT
  Sex: Female

DRUGS (1)
  1. AYVAKIT [Suspect]
     Active Substance: AVAPRITINIB
     Indication: Systemic mastocytosis
     Route: 048
     Dates: start: 20240603

REACTIONS (4)
  - Fatigue [Recovering/Resolving]
  - Face oedema [Not Recovered/Not Resolved]
  - Headache [Recovering/Resolving]
  - Abdominal discomfort [Recovering/Resolving]
